FAERS Safety Report 26196785 (Version 1)
Quarter: 2025Q4

REPORT INFORMATION
  Report Type: Spontaneous
  Country: US (occurrence: US)
  Receive Date: 20251224
  Receipt Date: 20251224
  Transmission Date: 20260117
  Serious: No
  Sender: ROCHE
  Company Number: US-ROCHE-10000464966

PATIENT

DRUGS (4)
  1. RITUXIMAB [Suspect]
     Active Substance: RITUXIMAB
     Indication: Systemic lupus erythematosus
  2. TACROLIMUS [Concomitant]
     Active Substance: TACROLIMUS
  3. TADALAFIL [Concomitant]
     Active Substance: TADALAFIL
     Indication: Raynaud^s phenomenon
  4. SILDENAFIL [Concomitant]
     Active Substance: SILDENAFIL

REACTIONS (3)
  - Pyrexia [Unknown]
  - Fatigue [Unknown]
  - Off label use [Unknown]
